FAERS Safety Report 5875708-1 (Version None)
Quarter: 2008Q3

REPORT INFORMATION
  Report Type: 
  Country: None (occurrence: None)
  Receive Date: 20080905
  Receipt Date: 20080826
  Transmission Date: 20090109
  Serious: Yes (Death)
  Sender: FDA-Public Use
  Company Number: B0534593A

PATIENT

DRUGS (6)
  1. BUSULPHAN    (FORMUALTION UNKNOWN)     (GENERIC)    (BUSULFAN) [Suspect]
  2. THIOTEPA [Suspect]
  3. LOMUSTINE [Concomitant]
  4. PROCARBAZINE [Concomitant]
  5. VINCRISTINE [Concomitant]
  6. GRANULOCYTE  COL.STIM.FACT [Concomitant]

REACTIONS (3)
  - ENCEPHALOPATHY [None]
  - HYPERTENSION [None]
  - VENOOCCLUSIVE DISEASE [None]
